FAERS Safety Report 8267145-X (Version None)
Quarter: 2012Q2

REPORT INFORMATION
  Report Type: 
  Country: None (occurrence: None)
  Receive Date: 20120409
  Receipt Date: 20120330
  Transmission Date: 20120825
  Serious: Yes (Hospitalization, Other)
  Sender: FDA-Public Use
  Company Number: US-BAYER-201016021NA

PATIENT
  Age: 36 Year
  Sex: Female
  Weight: 113.64 kg

DRUGS (8)
  1. YASMIN [Suspect]
     Indication: PRODUCT USED FOR UNKNOWN INDICATION
     Dosage: UNK UNK, QD
     Route: 048
     Dates: start: 20051101, end: 20060301
  2. LUPRON [Concomitant]
     Dosage: 3.5 MG, Q1MON
     Route: 030
  3. SYNTHROID [Concomitant]
     Dosage: 0.075 MG, QD
  4. IRON [Concomitant]
  5. DARVOCET-N 50 [Concomitant]
     Dosage: UNK UNK, PRN
  6. YAZ [Suspect]
     Indication: PRODUCT USED FOR UNKNOWN INDICATION
     Route: 048
  7. FEOSOL [Concomitant]
     Dosage: 325 MG, QD
  8. LEVOTHYROXINE SODIUM [Concomitant]
     Dosage: UNK
     Dates: start: 20060101

REACTIONS (3)
  - GALLBLADDER INJURY [None]
  - CHOLECYSTITIS CHRONIC [None]
  - PULMONARY EMBOLISM [None]
